FAERS Safety Report 21299503 (Version 2)
Quarter: 2022Q3

REPORT INFORMATION
  Report Type: Report from Study
  Country: IT (occurrence: IT)
  Receive Date: 20220906
  Receipt Date: 20220914
  Transmission Date: 20221027
  Serious: Yes (Life-Threatening)
  Sender: FDA-Public Use
  Company Number: None

PATIENT
  Age: 65 Year
  Sex: Female

DRUGS (8)
  1. ALPRAZOLAM [Suspect]
     Active Substance: ALPRAZOLAM
     Dosage: 20 TABLETS TAKEN
     Route: 048
     Dates: start: 20220828, end: 20220828
  2. LORAZEPAM [Suspect]
     Active Substance: LORAZEPAM
     Dosage: 20 TABLETS TAKEN
     Route: 048
     Dates: start: 20220828, end: 20220828
  3. FLURAZEPAM MONOHYDROCHLORIDE [Suspect]
     Active Substance: FLURAZEPAM MONOHYDROCHLORIDE
     Dosage: 60 CAPSULES
     Route: 048
     Dates: start: 20220828, end: 20220828
  4. NALOXONE HYDROCHLORIDE\OXYCODONE HYDROCHLORIDE [Suspect]
     Active Substance: NALOXONE HYDROCHLORIDE\OXYCODONE HYDROCHLORIDE
     Dosage: 28 TABLETS TAKEN
     Route: 048
     Dates: start: 20220828, end: 20220828
  5. TRAZODONE HYDROCHLORIDE [Suspect]
     Active Substance: TRAZODONE HYDROCHLORIDE
     Dosage: 30 TABLETS TAKEN
     Route: 048
     Dates: start: 20220828, end: 20220828
  6. NIMESULIDE [Suspect]
     Active Substance: NIMESULIDE
     Dosage: 60 TABLETS TAKEN
     Route: 048
     Dates: start: 20220828, end: 20220828
  7. METFORMIN HYDROCHLORIDE [Concomitant]
     Active Substance: METFORMIN HYDROCHLORIDE
     Indication: Diabetes mellitus
     Dosage: UNK
  8. LEVOTHYROXINE SODIUM [Concomitant]
     Active Substance: LEVOTHYROXINE SODIUM
     Indication: Thyroidectomy
     Dosage: UNK

REACTIONS (12)
  - Coma [Recovered/Resolved]
  - Hypoxia [Unknown]
  - Respiratory failure [Unknown]
  - Respiratory acidosis [Unknown]
  - Drug abuse [Recovered/Resolved with Sequelae]
  - Intentional self-injury [Recovered/Resolved with Sequelae]
  - Maximal voluntary ventilation abnormal [Unknown]
  - Lethargy [Unknown]
  - Urine analysis abnormal [Unknown]
  - Sopor [Unknown]
  - Creatinine urine increased [Unknown]
  - Patient uncooperative [Unknown]

NARRATIVE: CASE EVENT DATE: 20220828
